FAERS Safety Report 6539338-0 (Version None)
Quarter: 2010Q1

REPORT INFORMATION
  Report Type: 
  Country: None (occurrence: None)
  Receive Date: 20100115
  Receipt Date: 20100105
  Transmission Date: 20100710
  Serious: Yes (Hospitalization)
  Sender: FDA-Public Use
  Company Number: PHHY2009GB44439

PATIENT
  Sex: Male

DRUGS (7)
  1. CLOZARIL [Suspect]
     Indication: SCHIZOPHRENIA
     Dosage: UNK
     Dates: start: 19910426
  2. CLOZARIL [Suspect]
     Dosage: UNK
     Dates: start: 20091013
  3. AMISULPRIDE [Concomitant]
     Dosage: 400 MG, BID
     Route: 048
  4. DESMOPRESSIN [Concomitant]
     Dosage: 200 MG, BID
     Route: 048
  5. METFORMIN [Concomitant]
     Dosage: 500 MG, BID
     Route: 048
  6. VENLAFAXINE [Concomitant]
     Dosage: 225 MG, QD
  7. PROCYCLIDINE HYDROCHLORIDE 2MG TAB [Concomitant]
     Dosage: 5 MG, UNK
     Route: 048

REACTIONS (4)
  - ASTHENIA [None]
  - HEMIPARESIS [None]
  - LOWER RESPIRATORY TRACT INFECTION [None]
  - TRANSIENT ISCHAEMIC ATTACK [None]
